FAERS Safety Report 23505844 (Version 1)
Quarter: 2024Q1

REPORT INFORMATION
  Report Type: Spontaneous
  Country: US (occurrence: US)
  Receive Date: 20240209
  Receipt Date: 20240209
  Transmission Date: 20240410
  Serious: No
  Sender: FDA-Public Use
  Company Number: US-002147023-NVSC2024US028093

PATIENT
  Age: 72 Year
  Sex: Female

DRUGS (2)
  1. LEQVIO [Suspect]
     Active Substance: INCLISIRAN SODIUM
     Indication: Hyperlipidaemia
     Dosage: UNK (284MG PER 1.5ML) (284 MG SC Q3MO X 2, THEN 284 MG SC Q6MO)
     Route: 058
     Dates: start: 20240116, end: 20240123
  2. LEQVIO [Suspect]
     Active Substance: INCLISIRAN SODIUM
     Indication: Adjuvant therapy

REACTIONS (3)
  - Malaise [Recovering/Resolving]
  - Fatigue [Recovering/Resolving]
  - Rash [Recovering/Resolving]

NARRATIVE: CASE EVENT DATE: 20240116
